FAERS Safety Report 12037374 (Version 1)
Quarter: 2016Q1

REPORT INFORMATION
  Report Type: Spontaneous
  Country: US (occurrence: None)
  Receive Date: 20160205
  Receipt Date: 20160205
  Transmission Date: 20160526
  Serious: Yes (Death, Life-Threatening, Hospitalization)
  Sender: FDA-Public Use
  Company Number: None

PATIENT
  Age: 86 Year
  Sex: Male
  Weight: 58.5 kg

DRUGS (1)
  1. CHLORAMBUCIL [Suspect]
     Active Substance: CHLORAMBUCIL
     Indication: CHRONIC LYMPHOCYTIC LEUKAEMIA
     Dosage: OTHER
     Route: 048
     Dates: start: 20140306, end: 20151201

REACTIONS (4)
  - Haematochezia [None]
  - Thrombocytopenia [None]
  - Melaena [None]
  - Anaemia [None]

NARRATIVE: CASE EVENT DATE: 20151128
